FAERS Safety Report 13906418 (Version 1)
Quarter: 2017Q3

REPORT INFORMATION
  Report Type: Spontaneous
  Country: US (occurrence: US)
  Receive Date: 20170825
  Receipt Date: 20170825
  Transmission Date: 20171127
  Serious: No
  Sender: FDA-Public Use
  Company Number: US-INCYTE CORPORATION-2017IN007044

PATIENT

DRUGS (1)
  1. JAKAFI [Suspect]
     Active Substance: RUXOLITINIB
     Indication: HAEMOCHROMATOSIS
     Dosage: 20 MG IN AM AND 10 MG IN PM DAILY
     Route: 048
     Dates: start: 20161224

REACTIONS (3)
  - Off label use [Unknown]
  - Oedema peripheral [Unknown]
  - Fatigue [Unknown]
